FAERS Safety Report 5287395-4 (Version None)
Quarter: 2007Q1

REPORT INFORMATION
  Report Type: 
  Country: None (occurrence: None)
  Receive Date: 20070116
  Receipt Date: 20061031
  Transmission Date: 20070707
  Serious: No
  Sender: FDA-Public Use
  Company Number: 2006SP003883

PATIENT
  Age: 64 Year
  Sex: Female
  Weight: 108.8633 kg

DRUGS (6)
  1. LUNESTA [Suspect]
     Indication: INSOMNIA
     Dosage: 3 MG;1X;ORAL
     Route: 048
     Dates: start: 20061030, end: 20061030
  2. METOPROLOL SUCCINATE [Concomitant]
  3. AVANDIA [Concomitant]
  4. LASIX [Concomitant]
  5. GLUCOVANCE [Concomitant]
  6. INSULIN [Concomitant]

REACTIONS (1)
  - MIDDLE INSOMNIA [None]
